FAERS Safety Report 8272562 (Version 3)
Quarter: 2013Q1

REPORT INFORMATION
  Report Type: Spontaneous
  Country: US (occurrence: US)
  Receive Date: 20111202
  Receipt Date: 20130118
  Transmission Date: 20140127
  Serious: Yes (Other)
  Sender: FDA-Public Use
  Company Number: US-ROCHE-1018122

PATIENT
  Sex: Male
  Weight: 59.02 kg

DRUGS (5)
  1. ACCUTANE [Suspect]
     Indication: ACNE
     Route: 065
     Dates: start: 20030320, end: 200309
  2. SINGULAIR [Concomitant]
  3. ADDERALL [Concomitant]
  4. ALLEGRA [Concomitant]
  5. ZANTAC [Concomitant]

REACTIONS (7)
  - Colitis ulcerative [Unknown]
  - Inflammatory bowel disease [Unknown]
  - Irritable bowel syndrome [Unknown]
  - Depression [Not Recovered/Not Resolved]
  - Stress [Not Recovered/Not Resolved]
  - Injury [Unknown]
  - Suicidal ideation [Unknown]
